FAERS Safety Report 9260640 (Version 1)
Quarter: 2013Q1

REPORT INFORMATION
  Report Type: Spontaneous
  Country: US (occurrence: None)
  Receive Date: 20121212
  Receipt Date: 20121212
  Transmission Date: 20140127
  Serious: No
  Sender: FDA-Public Use
  Company Number: 1209USA011305

PATIENT
  Sex: 0

DRUGS (3)
  1. PEGINTRON [Suspect]
     Indication: HEPATITIS C
  2. REBETOL [Suspect]
     Indication: HEPATITIS
     Dosage: ORAL
  3. VICTRELIS [Suspect]
     Indication: HEPATITIS C
     Dosage: ORAL

REACTIONS (1)
  - No therapeutic response [None]
